FAERS Safety Report 21503179 (Version 1)
Quarter: 2022Q4

REPORT INFORMATION
  Report Type: Spontaneous
  Country: US (occurrence: None)
  Receive Date: 20221024
  Receipt Date: 20221024
  Transmission Date: 20230112
  Serious: Yes (Life-Threatening, Hospitalization, Other)
  Sender: FDA-Public Use
  Company Number: None

PATIENT
  Age: 41 Year
  Sex: Female
  Weight: 90 kg

DRUGS (11)
  1. LATUDA [Suspect]
     Active Substance: LURASIDONE HYDROCHLORIDE
     Indication: Off label use
     Dosage: OTHER QUANTITY : 1 TABLET(S);?FREQUENCY : DAILY;?
     Route: 048
  2. TRAMADOL [Concomitant]
     Active Substance: TRAMADOL
  3. PRAMIPEXOLE [Concomitant]
     Active Substance: PRAMIPEXOLE
  4. LETROZOLE [Concomitant]
     Active Substance: LETROZOLE
  5. BACLOFEN [Concomitant]
     Active Substance: BACLOFEN
  6. WELLBUTRIN SR [Concomitant]
     Active Substance: BUPROPION HYDROCHLORIDE
  7. PROPRANOLOL [Concomitant]
     Active Substance: PROPRANOLOL HYDROCHLORIDE
  8. LORAZEPAM [Concomitant]
     Active Substance: LORAZEPAM
  9. HYDROXYZINE HYDROCHLORIDE [Concomitant]
     Active Substance: HYDROXYZINE HYDROCHLORIDE
  10. CALCIUM [Concomitant]
     Active Substance: CALCIUM
  11. VITAMIN D [Concomitant]
     Active Substance: VITAMIN D NOS

REACTIONS (13)
  - Delusion [None]
  - Hallucinations, mixed [None]
  - Abnormal behaviour [None]
  - Emotional disorder [None]
  - Blood sodium decreased [None]
  - Delirium [None]
  - Suicidal behaviour [None]
  - Overdose [None]
  - Product complaint [None]
  - Memory impairment [None]
  - Off label use [None]
  - Aggression [None]
  - Product label issue [None]

NARRATIVE: CASE EVENT DATE: 20170920
